FAERS Safety Report 7813201-7 (Version None)
Quarter: 2011Q4

REPORT INFORMATION
  Report Type: 
  Country: None (occurrence: None)
  Receive Date: 20111013
  Receipt Date: 20111012
  Transmission Date: 20120403
  Serious: Yes (Hospitalization, Other)
  Sender: FDA-Public Use
  Company Number: US-ABBOTT-11P-163-0726653-00

PATIENT
  Age: 67 Year
  Sex: Female

DRUGS (6)
  1. PREDNISONE [Concomitant]
     Indication: RHEUMATOID ARTHRITIS
  2. SULFASALAZINE [Concomitant]
     Indication: RHEUMATOID ARTHRITIS
  3. HUMIRA [Suspect]
     Dates: start: 20110404
  4. FOSAMAX [Concomitant]
     Indication: OSTEOARTHRITIS
  5. HUMIRA [Suspect]
     Indication: RHEUMATOID ARTHRITIS
     Dates: end: 20110324
  6. NORVASC [Concomitant]
     Indication: HYPERTENSION

REACTIONS (10)
  - RHEUMATOID ARTHRITIS [None]
  - JOINT CREPITATION [None]
  - HYPERTHYROIDISM [None]
  - FUNGAL INFECTION [None]
  - ORAL CANDIDIASIS [None]
  - DRUG INEFFECTIVE [None]
  - JOINT SWELLING [None]
  - DEVICE DISLOCATION [None]
  - LOCALISED OEDEMA [None]
  - OEDEMA PERIPHERAL [None]
